FAERS Safety Report 5026878-9 (Version None)
Quarter: 2006Q2

REPORT INFORMATION
  Report Type: 
  Country: None (occurrence: None)
  Receive Date: 20060609
  Receipt Date: 20060530
  Transmission Date: 20061013
  Serious: Yes (Life-Threatening)
  Sender: FDA-Public Use
  Company Number: 29308

PATIENT
  Age: 60 Year
  Sex: Female

DRUGS (7)
  1. TAMBOCOR [Suspect]
     Indication: SUICIDE ATTEMPT
     Dosage: 2150 MG (1 TOTAL) ORAL
     Route: 048
     Dates: start: 20060510, end: 20060510
  2. ARTIST [Suspect]
     Indication: SUICIDE ATTEMPT
     Dosage: ORAL
     Route: 048
     Dates: start: 20060510, end: 20060510
  3. GASTER D [Concomitant]
  4. LIPITOR [Concomitant]
  5. ASPIRIN [Concomitant]
  6. SIGMART [Concomitant]
  7. BAYCARON [Concomitant]

REACTIONS (4)
  - ARRHYTHMIA [None]
  - DRUG TOXICITY [None]
  - INCORRECT DOSE ADMINISTERED [None]
  - SUICIDE ATTEMPT [None]
